FAERS Safety Report 6147159-6 (Version None)
Quarter: 2009Q2

REPORT INFORMATION
  Report Type: 
  Country: None (occurrence: None)
  Receive Date: 20090407
  Receipt Date: 20080520
  Transmission Date: 20091009
  Serious: Yes (Death)
  Sender: FDA-Public Use
  Company Number: US-TYCO HEALTHCARE/MALLINCKRODT-T200800862

PATIENT

DRUGS (5)
  1. METHADOSE [Suspect]
     Indication: PAIN
  2. OXYCODONE HCL [Suspect]
     Indication: PAIN
  3. MORPHINE [Suspect]
     Indication: PAIN
  4. ACTIQ [Suspect]
     Indication: PAIN
     Dosage: 600 UG, UNK
     Route: 002
  5. ACTIQ [Suspect]
     Dosage: 800 UG, UNK
     Route: 002

REACTIONS (1)
  - MULTIPLE DRUG OVERDOSE [None]
